FAERS Safety Report 10009238 (Version 2)
Quarter: 2014Q1

REPORT INFORMATION
  Report Type: Spontaneous
  Country: US (occurrence: US)
  Receive Date: 20140313
  Receipt Date: 20140313
  Transmission Date: 20141002
  Serious: No
  Sender: FDA-Public Use
  Company Number: US-GILEAD-2013-0075120

PATIENT
  Sex: Female

DRUGS (2)
  1. LETAIRIS [Suspect]
     Indication: COR PULMONALE CHRONIC
     Dosage: 5 MG, QD
     Dates: start: 20130506
  2. LETAIRIS [Suspect]
     Dosage: 5 MG, UNK
     Dates: start: 20130503

REACTIONS (7)
  - Hypotension [Unknown]
  - Cough [Unknown]
  - Heart rate increased [Unknown]
  - Laboratory test abnormal [Unknown]
  - Swelling face [Unknown]
  - Dyspnoea [Unknown]
  - Local swelling [Unknown]
